FAERS Safety Report 7391230-8 (Version None)
Quarter: 2011Q2

REPORT INFORMATION
  Report Type: 
  Country: None (occurrence: None)
  Receive Date: 20110404
  Receipt Date: 20100519
  Transmission Date: 20111010
  Serious: No
  Sender: FDA-Public Use
  Company Number: US-PFIZER INC-2010063270

PATIENT
  Sex: Female
  Weight: 54.422 kg

DRUGS (1)
  1. ZOLOFT [Suspect]
     Indication: DEPRESSION
     Dosage: 25 MG,  DAILY
     Route: 048
     Dates: start: 20100517

REACTIONS (1)
  - SOMNOLENCE [None]
